FAERS Safety Report 17937977 (Version 1)
Quarter: 2020Q2

REPORT INFORMATION
  Report Type: Spontaneous
  Country: CA (occurrence: CA)
  Receive Date: 20200624
  Receipt Date: 20200624
  Transmission Date: 20200714
  Serious: Yes (Hospitalization)
  Sender: FDA-Public Use
  Company Number: CA-PFIZER INC-2018454015

PATIENT
  Age: 61 Year
  Sex: Female

DRUGS (4)
  1. PREDNISONE. [Concomitant]
     Active Substance: PREDNISONE
     Dosage: 10 MG, 1X/DAY
  2. PREDNISONE. [Concomitant]
     Active Substance: PREDNISONE
     Indication: RHEUMATOID ARTHRITIS
     Dosage: UNK (HIGH DOSE)
  3. XELJANZ [Suspect]
     Active Substance: TOFACITINIB CITRATE
     Indication: RHEUMATOID ARTHRITIS
     Dosage: 5 MG, 2X/DAY
     Route: 048
     Dates: start: 20181029
  4. PREDNISONE. [Concomitant]
     Active Substance: PREDNISONE
     Indication: DYSPNOEA
     Dosage: 8 MG, UNK (SHE IS WEANING OF IT. SHE WILL LOWER IT BY 1 MG, EVERY WEEK.)

REACTIONS (7)
  - Lung disorder [Unknown]
  - Diarrhoea [Unknown]
  - Nasopharyngitis [Unknown]
  - Abdominal discomfort [Not Recovered/Not Resolved]
  - Diverticulitis [Unknown]
  - Condition aggravated [Unknown]
  - Female genital tract fistula [Unknown]

NARRATIVE: CASE EVENT DATE: 2018
